FAERS Safety Report 5074564-1 (Version None)
Quarter: 2006Q3

REPORT INFORMATION
  Report Type: 
  Country: None (occurrence: None)
  Receive Date: 20060808
  Receipt Date: 20050809
  Transmission Date: 20061208
  Serious: No
  Sender: FDA-Public Use
  Company Number: US-AMGEN-KDL146062

PATIENT
  Age: 66 Year
  Sex: Female
  Weight: 90.8 kg

DRUGS (8)
  1. PROCRIT [Suspect]
     Indication: RENAL FAILURE CHRONIC
     Dates: start: 20020101
  2. INSULIN [Concomitant]
  3. LASIX [Concomitant]
  4. DILTIAZEM HCL [Concomitant]
  5. LEXAPRO [Concomitant]
  6. LIPITOR [Concomitant]
  7. AMITRIPTYLINE HCL [Concomitant]
  8. METHADONE HCL [Concomitant]

REACTIONS (2)
  - NAUSEA [None]
  - THERAPEUTIC RESPONSE DECREASED [None]
